FAERS Safety Report 10365778 (Version 1)
Quarter: 2014Q3

REPORT INFORMATION
  Report Type: Report from Study
  Country: ES (occurrence: ES)
  Receive Date: 20140806
  Receipt Date: 20140806
  Transmission Date: 20150326
  Serious: Yes (Other)
  Sender: FDA-Public Use
  Company Number: ES-PFIZER INC-2014215312

PATIENT
  Age: 5 Year

DRUGS (2)
  1. TEMOZOLOMIDE [Suspect]
     Active Substance: TEMOZOLOMIDE
     Indication: MEDULLOBLASTOMA
     Dosage: 80-100 MG/M2/DAY FOR THE FIRST 5 DAYS (CYCLE 8)
     Route: 048
  2. IRINOTECAN HCL [Suspect]
     Active Substance: IRINOTECAN HYDROCHLORIDE
     Indication: MEDULLOBLASTOMA
     Dosage: 10-20 MG/M2/DAY FOR 10 DAYS (5 DAYS, 2 DAYS OFF AND ANOTHER 5 DAYS OF ADMINISTRATION) (8 CYCLES)
     Route: 042

REACTIONS (1)
  - Hepatotoxicity [Unknown]
